FAERS Safety Report 6557754-8 (Version None)
Quarter: 2010Q1

REPORT INFORMATION
  Report Type: 
  Country: None (occurrence: None)
  Receive Date: 20100128
  Receipt Date: 20100128
  Transmission Date: 20100710
  Serious: Yes (Life-Threatening, Hospitalization, Disabling, Other)
  Sender: FDA-Public Use
  Company Number: None

PATIENT
  Age: 69 Year
  Sex: Female
  Weight: 86.1834 kg

DRUGS (1)
  1. BONIVA [Suspect]
     Indication: OSTEOPOROSIS
     Dosage: 150 MG ONCE A MONTH DRINK WITH FULL GLASS OF WATER 2006-2007 TO DEC. 31, 2008
     Dates: end: 20081231

REACTIONS (5)
  - ANGINA PECTORIS [None]
  - ARTHRITIS [None]
  - GALLBLADDER NON-FUNCTIONING [None]
  - GASTROOESOPHAGEAL REFLUX DISEASE [None]
  - HIATUS HERNIA [None]
